FAERS Safety Report 16029300 (Version 3)
Quarter: 2019Q4

REPORT INFORMATION
  Report Type: Report from Study
  Country: US (occurrence: US)
  Receive Date: 20190304
  Receipt Date: 20191205
  Transmission Date: 20200122
  Serious: No
  Sender: FDA-Public Use
  Company Number: US-SA-2019SA057589

PATIENT
  Age: 57 Year
  Sex: Female
  Weight: 81.6 kg

DRUGS (1)
  1. TERIFLUNOMIDE. [Suspect]
     Active Substance: TERIFLUNOMIDE
     Indication: MULTIPLE SCLEROSIS
     Dosage: 14 MG, QD
     Route: 048
     Dates: start: 20151123

REACTIONS (12)
  - Muscular weakness [Unknown]
  - Colonoscopy [Unknown]
  - Muscle tightness [Unknown]
  - Weight decreased [Unknown]
  - Headache [Unknown]
  - Alopecia [Unknown]
  - Product use issue [Unknown]
  - Muscle spasms [Unknown]
  - Pain [Unknown]
  - Diarrhoea [Recovered/Resolved]
  - Hypoaesthesia [Unknown]
  - Urinary incontinence [Unknown]

NARRATIVE: CASE EVENT DATE: 20190226
